FAERS Safety Report 12597302 (Version 4)
Quarter: 2016Q3

REPORT INFORMATION
  Report Type: Report from Study
  Country: IT (occurrence: IT)
  Receive Date: 20160726
  Receipt Date: 20160922
  Transmission Date: 20161109
  Serious: No
  Sender: FDA-Public Use
  Company Number: IT-JNJFOC-20160718032

PATIENT
  Age: 61 Year
  Sex: Female

DRUGS (4)
  1. PLD [Suspect]
     Active Substance: DOXORUBICIN HYDROCHLORIDE
     Indication: OVARIAN CANCER RECURRENT
     Dosage: CYCLE 1 AND DOSE 50 (UNITS NOT SPECIFIED) PRIOR TO BASELINE VISIT
     Route: 042
     Dates: start: 20160422, end: 20160506
  2. TRABECTEDIN [Suspect]
     Active Substance: TRABECTEDIN
     Indication: OVARIAN CANCER RECURRENT
     Dosage: CYCLE 1 PRIOR TO BASELINE VISIT
     Route: 042
     Dates: start: 20160422, end: 20160506
  3. TRABECTEDIN [Suspect]
     Active Substance: TRABECTEDIN
     Indication: OVARIAN CANCER RECURRENT
     Dosage: 1.5 (UNITS UNSPECIFIED) AFTER BASELINE VISIT
     Route: 042
     Dates: start: 20160525
  4. PLD [Suspect]
     Active Substance: DOXORUBICIN HYDROCHLORIDE
     Indication: OVARIAN CANCER RECURRENT
     Dosage: DOSE 43 (UNITS NOT SPECIFIED) AFTER TO BASELINE VISIT
     Route: 042
     Dates: start: 20160525

REACTIONS (9)
  - Neutropenia [Recovered/Resolved]
  - Thrombocytopenia [Recovered/Resolved]
  - Neutropenia [Recovered/Resolved]
  - Neutropenia [Recovered/Resolved]
  - Thrombocytopenia [Recovered/Resolved]
  - Transaminases increased [Recovered/Resolved]
  - Neutropenia [Recovered/Resolved]
  - Leukopenia [Recovered/Resolved]
  - Leukopenia [Recovered/Resolved]

NARRATIVE: CASE EVENT DATE: 20160429
